FAERS Safety Report 8220903-X (Version None)
Quarter: 2012Q1

REPORT INFORMATION
  Report Type: 
  Country: None (occurrence: None)
  Receive Date: 20120319
  Receipt Date: 20120315
  Transmission Date: 20120608
  Serious: No
  Sender: FDA-Public Use
  Company Number: US-TEVA-328328USA

PATIENT
  Age: 41 Year
  Sex: Female
  Weight: 56.296 kg

DRUGS (4)
  1. SUMATRIPTAN [Concomitant]
  2. ALPRAZOLAM [Concomitant]
  3. BENAZEPRIL HYDROCHLORIDE [Concomitant]
  4. COPAXONE [Suspect]
     Indication: MULTIPLE SCLEROSIS
     Route: 058

REACTIONS (2)
  - LYMPHADENOPATHY [None]
  - MELANOCYTIC NAEVUS [None]
